FAERS Safety Report 8391065-3 (Version None)
Quarter: 2012Q2

REPORT INFORMATION
  Report Type: 
  Country: None (occurrence: None)
  Receive Date: 20120529
  Receipt Date: 20120518
  Transmission Date: 20120825
  Serious: Yes (Hospitalization, Other)
  Sender: FDA-Public Use
  Company Number: US-JNJFOC-20120401052

PATIENT
  Sex: Female

DRUGS (10)
  1. NOVOLIN N [Concomitant]
     Indication: DIABETES MELLITUS
     Route: 065
  2. LISINOPRIL [Concomitant]
     Indication: HYPERTENSION
     Route: 065
  3. REMICADE [Suspect]
     Indication: CROHN'S DISEASE
     Route: 042
     Dates: start: 20110801
  4. ASACOL [Concomitant]
     Route: 065
  5. PROBIOTIC [Concomitant]
     Route: 048
  6. PREDNISONE [Concomitant]
     Route: 065
  7. CIPROFLOXACIN HCL [Concomitant]
     Route: 065
  8. REMICADE [Suspect]
     Route: 042
     Dates: start: 20111001
  9. NEXIUM [Concomitant]
     Indication: GASTROOESOPHAGEAL REFLUX DISEASE
     Route: 065
  10. FLAGYL [Concomitant]
     Route: 065

REACTIONS (3)
  - CARDIOMEGALY [None]
  - LUPUS-LIKE SYNDROME [None]
  - PERICARDIAL EFFUSION [None]
